FAERS Safety Report 12742071 (Version 1)
Quarter: 2016Q3

REPORT INFORMATION
  Report Type: Spontaneous
  Country: HU (occurrence: HU)
  Receive Date: 20160914
  Receipt Date: 20160914
  Transmission Date: 20161109
  Serious: Yes (Death, Other)
  Sender: FDA-Public Use
  Company Number: HU-PFIZER INC-2016422012

PATIENT
  Age: 62 Year
  Sex: Male

DRUGS (1)
  1. XALKORI [Suspect]
     Active Substance: CRIZOTINIB
     Indication: ADENOCARCINOMA
     Dosage: UNK
     Dates: start: 20140725

REACTIONS (5)
  - Oedema peripheral [Unknown]
  - Disease progression [Unknown]
  - Adenocarcinoma [Unknown]
  - Death [Fatal]
  - Leukopenia [Unknown]

NARRATIVE: CASE EVENT DATE: 201512
